FAERS Safety Report 17821482 (Version 1)
Quarter: 2020Q2

REPORT INFORMATION
  Report Type: Spontaneous
  Country: US (occurrence: US)
  Receive Date: 20200525
  Receipt Date: 20200525
  Transmission Date: 20200714
  Serious: Yes (Hospitalization)
  Sender: FDA-Public Use
  Company Number: US-ASTRAZENECA-2020SE32466

PATIENT
  Age: 279 Day
  Sex: Male
  Weight: 7.8 kg

DRUGS (6)
  1. SYNAGIS [Suspect]
     Active Substance: PALIVIZUMAB
     Indication: ANTIVIRAL PROPHYLAXIS
     Route: 030
     Dates: start: 20191107
  2. HEPBSHOT [Concomitant]
     Dates: start: 20200228
  3. FLUSHOT [Concomitant]
     Active Substance: INFLUENZA VIRUS VACCINE
     Dates: start: 20200228
  4. SYNAGIS [Suspect]
     Active Substance: PALIVIZUMAB
     Indication: PREMATURE BABY
     Route: 030
     Dates: start: 20191107
  5. SYNAGIS [Suspect]
     Active Substance: PALIVIZUMAB
     Indication: ANTIVIRAL PROPHYLAXIS
     Route: 030
     Dates: start: 20200228
  6. SYNAGIS [Suspect]
     Active Substance: PALIVIZUMAB
     Indication: PREMATURE BABY
     Route: 030
     Dates: start: 20200228

REACTIONS (1)
  - Respiratory distress [Recovered/Resolved]

NARRATIVE: CASE EVENT DATE: 20200302
